FAERS Safety Report 7533941-7 (Version None)
Quarter: 2011Q2

REPORT INFORMATION
  Report Type: 
  Country: None (occurrence: None)
  Receive Date: 20110608
  Receipt Date: 20060803
  Transmission Date: 20111010
  Serious: Yes (Other)
  Sender: FDA-Public Use
  Company Number: PHHO2006CL12713

PATIENT

DRUGS (1)
  1. GLEEVEC [Suspect]
     Dosage: 400 MG, UNK
     Route: 048

REACTIONS (5)
  - CAROTID PULSE ABNORMAL [None]
  - INTERMITTENT CLAUDICATION [None]
  - ARTERIOSCLEROSIS [None]
  - SKIN DISORDER [None]
  - PULSE ABNORMAL [None]
